FAERS Safety Report 8958658 (Version 1)
Quarter: 2012Q4

REPORT INFORMATION
  Report Type: Spontaneous
  Country: US (occurrence: None)
  Receive Date: 20121206
  Receipt Date: 20121206
  Transmission Date: 20130627
  Serious: No
  Sender: FDA-Public Use
  Company Number: None

PATIENT
  Age: 44 Year
  Sex: Female
  Weight: 63.5 kg

DRUGS (2)
  1. LEVOFLOXACIN [Suspect]
     Indication: SINUS INFECTION
     Dosage: 500mg once a day for 10  po
     Route: 048
     Dates: start: 20121002, end: 20121011
  2. LEVOFLOXACIN [Suspect]
     Indication: STAPHYLOCOCCAL INFECTION
     Dosage: 500mg once a day for 10  po
     Route: 048
     Dates: start: 20121002, end: 20121011

REACTIONS (7)
  - Arthralgia [None]
  - Nerve compression [None]
  - Hypoaesthesia [None]
  - Paraesthesia [None]
  - Pain in extremity [None]
  - Oedema peripheral [None]
  - Joint stiffness [None]
